FAERS Safety Report 7750523-2 (Version None)
Quarter: 2011Q3

REPORT INFORMATION
  Report Type: 
  Country: None (occurrence: None)
  Receive Date: 20110914
  Receipt Date: 20110907
  Transmission Date: 20111222
  Serious: Yes (Life-Threatening, Hospitalization)
  Sender: FDA-Public Use
  Company Number: CH-BAXTER-2011BH028820

PATIENT
  Age: 26 Year
  Sex: Female
  Weight: 72 kg

DRUGS (8)
  1. SUCCINYLCHOLINE CHLORIDE [Suspect]
     Indication: NEUROMUSCULAR BLOCKING THERAPY
     Route: 040
     Dates: start: 20110814, end: 20110814
  2. PHENOBARBITAL TAB [Concomitant]
     Indication: ANAESTHESIA
     Route: 040
     Dates: start: 20110814, end: 20110814
  3. FENTANYL [Concomitant]
     Indication: ANALGESIC THERAPY
     Route: 041
     Dates: start: 20110814, end: 20110814
  4. ETHINYL ESTRADIOL [Concomitant]
     Indication: ORAL CONTRACEPTION
     Route: 048
  5. SEVOFLURANE [Suspect]
     Indication: ANAESTHESIA
     Route: 055
     Dates: start: 20110814, end: 20110814
  6. AUGMENTIN '125' [Concomitant]
     Indication: PROPHYLACTIC CHEMOTHERAPY
     Route: 041
     Dates: start: 20110814, end: 20110814
  7. PHENYLEPHRINE HCL [Concomitant]
     Indication: HYPOTENSION
     Route: 040
     Dates: start: 20110814, end: 20110814
  8. ROCURONIUM BROMIDE [Concomitant]
     Indication: PRODUCT USED FOR UNKNOWN INDICATION
     Route: 041
     Dates: start: 20110814, end: 20110814

REACTIONS (6)
  - ACIDOSIS [None]
  - TRISMUS [None]
  - HYPERKALAEMIA [None]
  - HYPERTHERMIA MALIGNANT [None]
  - HYPERCAPNIA [None]
  - RHABDOMYOLYSIS [None]
